FAERS Safety Report 19454924 (Version 1)
Quarter: 2021Q2

REPORT INFORMATION
  Report Type: Spontaneous
  Country: CA (occurrence: CA)
  Receive Date: 20210623
  Receipt Date: 20210623
  Transmission Date: 20210717
  Serious: Yes (Hospitalization, Other)
  Sender: FDA-Public Use
  Company Number: CA-PFIZER INC-2021689703

PATIENT
  Age: 68 Year
  Sex: Female

DRUGS (3)
  1. METHOTREXATE. [Concomitant]
     Active Substance: METHOTREXATE
     Dosage: 20 MG, WEEKLY
     Route: 065
  2. XELJANZ [Suspect]
     Active Substance: TOFACITINIB CITRATE
     Route: 065
  3. HUMIRA [Suspect]
     Active Substance: ADALIMUMAB
     Route: 058

REACTIONS (8)
  - Colitis [Recovered/Resolved]
  - Infection [Recovered/Resolved]
  - Dehydration [Recovered/Resolved]
  - Pulse abnormal [Recovered/Resolved]
  - Diverticulitis [Recovered/Resolved]
  - SARS-CoV-2 test positive [Recovered/Resolved]
  - Drug ineffective [Recovered/Resolved]
  - Lymphoma [Recovered/Resolved]
